FAERS Safety Report 19033980 (Version 1)
Quarter: 2021Q1

REPORT INFORMATION
  Report Type: Spontaneous
  Country: US (occurrence: US)
  Receive Date: 20210319
  Receipt Date: 20210319
  Transmission Date: 20210420
  Serious: Yes (Life-Threatening, Disabling)
  Sender: FDA-Public Use
  Company Number: US-AMERICAN REGENT INC-2021000662

PATIENT
  Sex: Female

DRUGS (4)
  1. INJECTAFER [Suspect]
     Active Substance: FERRIC CARBOXYMALTOSE
     Dosage: UNK UNK, SINGLE
     Route: 042
     Dates: start: 20200219, end: 20200219
  2. INJECTAFER [Suspect]
     Active Substance: FERRIC CARBOXYMALTOSE
     Dosage: UNK UNK, SINGLE
     Route: 042
     Dates: start: 20190321, end: 20190321
  3. INJECTAFER [Suspect]
     Active Substance: FERRIC CARBOXYMALTOSE
     Indication: BLOOD IRON DECREASED
     Dosage: UNK UNK, SINGLE
     Route: 042
     Dates: start: 20190313, end: 20190313
  4. INJECTAFER [Suspect]
     Active Substance: FERRIC CARBOXYMALTOSE
     Dosage: UNK UNK, SINGLE
     Route: 042
     Dates: start: 20200212, end: 20200212

REACTIONS (10)
  - Myalgia [Not Recovered/Not Resolved]
  - Asthenia [Not Recovered/Not Resolved]
  - Hypophosphataemia [Not Recovered/Not Resolved]
  - Headache [Not Recovered/Not Resolved]
  - Anhedonia [Not Recovered/Not Resolved]
  - Emotional distress [Not Recovered/Not Resolved]
  - Pain [Not Recovered/Not Resolved]
  - Arthralgia [Not Recovered/Not Resolved]
  - Partner stress [Not Recovered/Not Resolved]
  - Product quality issue [Unknown]
